FAERS Safety Report 7799832-1 (Version None)
Quarter: 2011Q4

REPORT INFORMATION
  Report Type: 
  Country: None (occurrence: None)
  Receive Date: 20111006
  Receipt Date: 20110929
  Transmission Date: 20120403
  Serious: Yes (Other)
  Sender: FDA-Public Use
  Company Number: US-NOVOPROD-336277

PATIENT

DRUGS (7)
  1. VICTOZA [Suspect]
     Dosage: 1.2 MG, UNK
     Route: 058
     Dates: start: 20110101, end: 20110922
  2. ZETIA [Concomitant]
     Indication: HYPERLIPIDAEMIA
  3. DYAZIDE [Concomitant]
     Indication: HYPERTENSION
  4. FISH OIL [Concomitant]
     Indication: HYPERLIPIDAEMIA
  5. RAMIPRIL [Concomitant]
     Indication: HYPERTENSION
  6. VICTOZA [Suspect]
     Indication: TYPE 2 DIABETES MELLITUS
     Dosage: 0.6 MG, QD
     Route: 058
     Dates: start: 20110801, end: 20110101
  7. CLONIDINE [Concomitant]
     Indication: HYPERTENSION

REACTIONS (2)
  - PANCREATITIS ACUTE [None]
  - FATIGUE [None]
